FAERS Safety Report 8065695-2 (Version None)
Quarter: 2012Q1

REPORT INFORMATION
  Report Type: 
  Country: None (occurrence: None)
  Receive Date: 20120124
  Receipt Date: 20120119
  Transmission Date: 20120608
  Serious: Yes (Other)
  Sender: FDA-Public Use
  Company Number: US-PFIZER INC-2012015514

PATIENT
  Sex: Male

DRUGS (1)
  1. CHANTIX [Suspect]
     Dosage: UNK
     Dates: start: 20100426

REACTIONS (6)
  - SUICIDAL IDEATION [None]
  - EMOTIONAL DISTRESS [None]
  - MENTAL DISORDER [None]
  - AGGRESSION [None]
  - INJURY [None]
  - ABNORMAL BEHAVIOUR [None]
